FAERS Safety Report 7803007-7 (Version None)
Quarter: 2011Q4

REPORT INFORMATION
  Report Type: 
  Country: None (occurrence: None)
  Receive Date: 20111007
  Receipt Date: 20110930
  Transmission Date: 20120403
  Serious: Yes (Hospitalization)
  Sender: FDA-Public Use
  Company Number: GB-EISAI INC-E2020-09803-SPO-GB

PATIENT
  Age: 72 Year
  Sex: Female

DRUGS (4)
  1. DONEPEZIL HCL [Suspect]
     Route: 048
     Dates: start: 20050101, end: 20050101
  2. DONEPEZIL HCL [Suspect]
  3. DONEPEZIL HCL [Suspect]
     Indication: DEMENTIA ALZHEIMER'S TYPE
     Route: 048
     Dates: end: 20050101
  4. DONEPEZIL HCL [Suspect]
     Route: 048
     Dates: start: 20050101, end: 20110901

REACTIONS (8)
  - PALLOR [None]
  - BLOOD PRESSURE DECREASED [None]
  - IRRITABILITY [None]
  - DEPRESSED LEVEL OF CONSCIOUSNESS [None]
  - SYNCOPE [None]
  - WITHDRAWAL SYNDROME [None]
  - HYPERSOMNIA [None]
  - RESTLESSNESS [None]
